FAERS Safety Report 8989396 (Version 1)
Quarter: 2012Q4

REPORT INFORMATION
  Report Type: 
  Country: GB (occurrence: GB)
  Receive Date: 20121227
  Receipt Date: 20121227
  Transmission Date: 20130627
  Serious: Yes (Other)
  Sender: FDA-Public Use
  Company Number: GB-JNJFOC-20121207679

PATIENT
  Age: 66 Year
  Sex: Female

DRUGS (9)
  1. SUDAFED [Suspect]
     Route: 048
  2. SUDAFED [Interacting]
     Indication: SINUS CONGESTION
     Route: 048
     Dates: start: 201211, end: 201211
  3. SUDAFED [Suspect]
     Indication: PRODUCT USED FOR UNKNOWN INDICATION
  4. RASAGILINE [Suspect]
     Indication: PRODUCT USED FOR UNKNOWN INDICATION
     Route: 065
  5. NAPROXEN [Concomitant]
     Indication: PRODUCT USED FOR UNKNOWN INDICATION
     Route: 065
  6. OMEPRAZOLE [Concomitant]
     Indication: PRODUCT USED FOR UNKNOWN INDICATION
     Route: 065
  7. REGURIN [Concomitant]
     Indication: PRODUCT USED FOR UNKNOWN INDICATION
     Route: 065
  8. ROPINIROLE [Concomitant]
     Indication: PRODUCT USED FOR UNKNOWN INDICATION
     Route: 065
  9. SINEMET (CARBIDOPA, LEVODOPA) [Concomitant]
     Indication: PRODUCT USED FOR UNKNOWN INDICATION
     Route: 065

REACTIONS (2)
  - Drug interaction [Unknown]
  - Headache [Recovered/Resolved]
